FAERS Safety Report 5339470-3 (Version None)
Quarter: 2007Q2

REPORT INFORMATION
  Report Type: 
  Country: None (occurrence: None)
  Receive Date: 20070525
  Receipt Date: 20070516
  Transmission Date: 20071010
  Serious: Yes (Other)
  Sender: FDA-Public Use
  Company Number: 2007JP002182

PATIENT
  Age: 92 Year
  Sex: Female

DRUGS (6)
  1. VESICARE [Suspect]
     Indication: HYPERTONIC BLADDER
     Dosage: ORAL
     Route: 048
     Dates: start: 20070309, end: 20070511
  2. NORVASC [Concomitant]
  3. BLOPRESS (CANDESARTAN CILEXETIL) [Concomitant]
  4. ZANTAC [Concomitant]
  5. KAMAG G (MAGNESIUM OXIDE) [Concomitant]
  6. PREDNISOLONE [Suspect]

REACTIONS (2)
  - CARDIAC FAILURE [None]
  - OEDEMA [None]
